FAERS Safety Report 9891948 (Version 2)
Quarter: 2015Q3

REPORT INFORMATION
  Report Type: Spontaneous
  Country: US (occurrence: US)
  Receive Date: 20140212
  Receipt Date: 20150723
  Transmission Date: 20151125
  Serious: No
  Sender: FDA-Public Use
  Company Number: US-GILEAD-2014-0094005

PATIENT
  Age: 46 Year
  Sex: Female

DRUGS (2)
  1. PROGESTERONE. [Interacting]
     Active Substance: PROGESTERONE
     Indication: ORAL CONTRACEPTION
     Dosage: UNK
     Route: 048
  2. STRIBILD [Suspect]
     Active Substance: COBICISTAT\ELVITEGRAVIR\EMTRICITABINE\TENOFOVIR DISOPROXIL FUMARATE
     Indication: PRODUCT USED FOR UNKNOWN INDICATION
     Dosage: UNK
     Route: 065

REACTIONS (2)
  - Cholelithiasis [Unknown]
  - Drug interaction [Unknown]
